FAERS Safety Report 6208903-2 (Version None)
Quarter: 2009Q2

REPORT INFORMATION
  Report Type: 
  Country: None (occurrence: None)
  Receive Date: 20090529
  Receipt Date: 20090524
  Transmission Date: 20091009
  Serious: Yes (Other)
  Sender: FDA-Public Use
  Company Number: B0576233A

PATIENT
  Age: 16 Year
  Sex: Female

DRUGS (1)
  1. ZANTAC [Suspect]
     Indication: DRUG USE FOR UNKNOWN INDICATION
     Dosage: 3TAB PER DAY
     Route: 065

REACTIONS (3)
  - INTENTIONAL OVERDOSE [None]
  - SELF-INDUCED VOMITING [None]
  - SUICIDE ATTEMPT [None]
